FAERS Safety Report 19595819 (Version 2)
Quarter: 2021Q3

REPORT INFORMATION
  Report Type: Spontaneous
  Country: DE (occurrence: DE)
  Receive Date: 20210722
  Receipt Date: 20210818
  Transmission Date: 20211014
  Serious: Yes (Other)
  Sender: FDA-Public Use
  Company Number: DE-ASTELLAS-2021US022256

PATIENT
  Sex: Female
  Weight: 52 kg

DRUGS (10)
  1. GILTERITINIB [Interacting]
     Active Substance: GILTERITINIB
     Route: 048
  2. CORTISONE [Concomitant]
     Active Substance: CORTISONE
     Indication: PRODUCT USED FOR UNKNOWN INDICATION
     Dosage: UNK UNK, UNKNOWN FREQ.
     Route: 065
     Dates: start: 202105
  3. VALACICLOVIR [Concomitant]
     Active Substance: VALACYCLOVIR HYDROCHLORIDE
     Indication: PRODUCT USED FOR UNKNOWN INDICATION
     Dosage: 500 UNK, ONCE DAILY (1?0?0)
     Route: 065
  4. FLUCONAZOLE. [Concomitant]
     Active Substance: FLUCONAZOLE
     Indication: PRODUCT USED FOR UNKNOWN INDICATION
     Dosage: UNK UNK, UNKNOWN FREQ.
     Route: 065
  5. COTRIM FORTE [Concomitant]
     Active Substance: SULFAMETHOXAZOLE\TRIMETHOPRIM
     Indication: PRODUCT USED FOR UNKNOWN INDICATION
     Dosage: 960 UNK, THRICE WEEKLY
     Route: 065
  6. PROGRAF [Interacting]
     Active Substance: TACROLIMUS
     Indication: STEM CELL TRANSPLANT
     Dosage: UNK UNK, ONCE DAILY
     Route: 065
     Dates: start: 20210201, end: 20210802
  7. SANDIMMUN [Concomitant]
     Active Substance: CYCLOSPORINE
     Indication: PRODUCT USED FOR UNKNOWN INDICATION
     Dosage: UNK UNK, UNKNOWN FREQ.
     Route: 065
  8. GILTERITINIB [Suspect]
     Active Substance: GILTERITINIB
     Indication: ACUTE MYELOID LEUKAEMIA
     Dosage: 120 MG, IN MORNING WITH MEALS (PAUSED FOR 1 DAY)
     Route: 048
     Dates: start: 20210518
  9. GILTERITINIB [Interacting]
     Active Substance: GILTERITINIB
     Dosage: 120 MG, UNKNOWN FREQ. (PAUSED FOR 2 DAY)
     Route: 048
  10. PANTOPRAZOL [Concomitant]
     Active Substance: PANTOPRAZOLE SODIUM
     Indication: PRODUCT USED FOR UNKNOWN INDICATION
     Dosage: 40 MG, ONCE DAILY (1?0?0)
     Route: 065

REACTIONS (11)
  - Euthyroid sick syndrome [Unknown]
  - Deafness [Recovered/Resolved]
  - Vomiting [Recovered/Resolved]
  - Product use in unapproved indication [Unknown]
  - Graft versus host disease [Unknown]
  - Diarrhoea [Recovered/Resolved]
  - Drug interaction [Unknown]
  - Hypoacusis [Recovered/Resolved]
  - Hypertension [Unknown]
  - Visual impairment [Recovered/Resolved]
  - Cataract [Recovered/Resolved]

NARRATIVE: CASE EVENT DATE: 202105
